FAERS Safety Report 8184608-6 (Version None)
Quarter: 2012Q1

REPORT INFORMATION
  Report Type: 
  Country: None (occurrence: None)
  Receive Date: 20120305
  Receipt Date: 20120228
  Transmission Date: 20120608
  Serious: Yes (Hospitalization, Other)
  Sender: FDA-Public Use
  Company Number: IT-PFIZER INC-2012054574

PATIENT
  Age: 24 Year
  Sex: Female

DRUGS (2)
  1. XANAX [Suspect]
     Dosage: 20 ML, TOTAL DOSE
     Route: 048
     Dates: start: 20120224
  2. PROZAC [Concomitant]

REACTIONS (6)
  - ALCOHOL INTERACTION [None]
  - INTENTIONAL OVERDOSE [None]
  - BRADYKINESIA [None]
  - BLOOD PRESSURE DECREASED [None]
  - BRADYPHRENIA [None]
  - SOPOR [None]
